FAERS Safety Report 6835832-3 (Version None)
Quarter: 2010Q3

REPORT INFORMATION
  Report Type: 
  Country: None (occurrence: None)
  Receive Date: 20100713
  Receipt Date: 20100702
  Transmission Date: 20110219
  Serious: Yes (Hospitalization)
  Sender: FDA-Public Use
  Company Number: US-ELI_LILLY_AND_COMPANY-US201007000991

PATIENT
  Sex: Female
  Weight: 95.238 kg

DRUGS (4)
  1. BYETTA [Suspect]
     Indication: TYPE 2 DIABETES MELLITUS
     Dosage: 5 UG, 2/D
     Route: 058
     Dates: start: 20100505
  2. METFORMIN HCL [Concomitant]
     Dosage: 1000 MG, 2/D
  3. ACTOS [Concomitant]
  4. PRANDIN [Concomitant]
     Dosage: 0.5 MG, AS NEEDED

REACTIONS (5)
  - BLOOD GLUCOSE INCREASED [None]
  - HEADACHE [None]
  - HOSPITALISATION [None]
  - INTENTIONAL DRUG MISUSE [None]
  - NAUSEA [None]
